FAERS Safety Report 8165662-4 (Version None)
Quarter: 2012Q1

REPORT INFORMATION
  Report Type: 
  Country: None (occurrence: None)
  Receive Date: 20120227
  Receipt Date: 20120216
  Transmission Date: 20120608
  Serious: Yes (Hospitalization)
  Sender: FDA-Public Use
  Company Number: US-BRISTOL-MYERS SQUIBB COMPANY-16376865

PATIENT
  Age: 72 Year
  Sex: Male
  Weight: 95 kg

DRUGS (9)
  1. ASPIRIN [Concomitant]
  2. NOVOLOG [Concomitant]
     Dosage: 1DF: 4 UNITS
  3. NORVASC [Concomitant]
  4. ERBITUX [Suspect]
     Indication: COLON CANCER
     Dosage: STARTED ERBITUX AT LEAST 2 MONTHS AGO
     Route: 042
  5. VASOTEC [Concomitant]
  6. LANTUS [Concomitant]
     Dosage: 1DF: 14 UNITS
     Route: 058
  7. METOPROLOL [Concomitant]
  8. LOPRESSOR [Concomitant]
  9. ZOCOR [Concomitant]

REACTIONS (2)
  - CHEST PAIN [None]
  - LOSS OF CONSCIOUSNESS [None]
